FAERS Safety Report 5876329-7 (Version None)
Quarter: 2008Q3

REPORT INFORMATION
  Report Type: 
  Country: None (occurrence: None)
  Receive Date: 20080910
  Receipt Date: 20080903
  Transmission Date: 20090109
  Serious: Yes (Other)
  Sender: FDA-Public Use
  Company Number: US-CELGENEUS-163-21880-08081023

PATIENT
  Sex: Female
  Weight: 58.112 kg

DRUGS (1)
  1. REVLIMID [Suspect]
     Indication: MULTIPLE MYELOMA
     Route: 048
     Dates: start: 20080713, end: 20080723

REACTIONS (5)
  - ADVERSE DRUG REACTION [None]
  - BODY TEMPERATURE INCREASED [None]
  - CYTOMEGALOVIRUS INFECTION [None]
  - NEUTROPENIA [None]
  - WHITE BLOOD CELL COUNT DECREASED [None]
